FAERS Safety Report 5912838-X (Version None)
Quarter: 2008Q4

REPORT INFORMATION
  Report Type: 
  Country: None (occurrence: None)
  Receive Date: 20081006
  Receipt Date: 20080926
  Transmission Date: 20090506
  Serious: Yes (Hospitalization)
  Sender: FDA-Public Use
  Company Number: TCI2008A03366

PATIENT
  Age: 81 Year
  Sex: Male

DRUGS (11)
  1. TAKEPRON OD TABLETS 15 MG (LANSOPRAZOLE)TABLETS [Suspect]
     Indication: DUODENAL ULCER
     Dosage: 30 MG (30 MG, 1 IN 1 D) PER ORAL
     Route: 048
     Dates: start: 20080129
  2. TAKEPRON OD TABLETS 15 MG (LANSOPRAZOLE)TABLETS [Suspect]
     Indication: HELICOBACTER INFECTION
     Dosage: 30 MG (30 MG, 1 IN 1 D) PER ORAL
     Route: 048
     Dates: start: 20080129
  3. GLYBURIDE [Suspect]
     Indication: DIABETES MELLITUS
     Dosage: SEE IMAGE
     Route: 048
     Dates: end: 20080124
  4. GLYBURIDE [Suspect]
     Indication: DIABETES MELLITUS
     Dosage: SEE IMAGE
     Route: 048
     Dates: start: 20080202, end: 20080222
  5. GLYBURIDE [Suspect]
     Indication: DIABETES MELLITUS
     Dosage: SEE IMAGE
     Route: 048
     Dates: start: 20080226, end: 20080227
  6. GLYBURIDE [Suspect]
     Indication: DIABETES MELLITUS
     Dosage: SEE IMAGE
     Route: 048
     Dates: start: 20080228, end: 20080307
  7. GLYBURIDE [Suspect]
     Indication: DIABETES MELLITUS
     Dosage: SEE IMAGE
     Route: 048
     Dates: start: 20080313, end: 20080323
  8. CLARITHROMYCIN [Suspect]
     Indication: HELICOBACTER INFECTION
     Dosage: 800 MG (400 MG, 2 IN 1 D) PER ORAL
     Route: 048
     Dates: start: 20080219, end: 20080225
  9. SWACILLIN (AMOXICILLIN TRIHYDRATE)CAPSULES [Concomitant]
  10. DIOVAN [Concomitant]
  11. ADALAT [Concomitant]

REACTIONS (12)
  - ALTERED STATE OF CONSCIOUSNESS [None]
  - BLOOD GLUCOSE INCREASED [None]
  - DIARRHOEA [None]
  - DUODENAL PERFORATION [None]
  - HEART RATE DECREASED [None]
  - HELICOBACTER INFECTION [None]
  - HYPERHIDROSIS [None]
  - HYPOGLYCAEMIA [None]
  - HYPOPHAGIA [None]
  - POTENTIATING DRUG INTERACTION [None]
  - TACHYPNOEA [None]
  - WHEEZING [None]
